FAERS Safety Report 9482311 (Version 2)
Quarter: 2013Q3

REPORT INFORMATION
  Report Type: Report from Study
  Country: GB (occurrence: GB)
  Receive Date: 20130828
  Receipt Date: 20130828
  Transmission Date: 20140515
  Serious: Yes (Hospitalization)
  Sender: FDA-Public Use
  Company Number: GB-ELI_LILLY_AND_COMPANY-GB201307002894

PATIENT
  Age: 77 Year
  Sex: Male
  Weight: 56.1 kg

DRUGS (5)
  1. PLACEBO [Suspect]
     Dosage: UNK
     Route: 042
     Dates: start: 20130621, end: 20130705
  2. GEMCITABINE HYDROCHLORIDE [Suspect]
     Dosage: 1000 MG/M2, UNK
     Route: 042
     Dates: start: 20130621, end: 20130705
  3. SIMVASTATIN [Concomitant]
     Dosage: UNK
     Dates: start: 2011
  4. RAMIPRIL [Concomitant]
     Dosage: UNK
     Dates: start: 2011
  5. CREON [Concomitant]
     Dosage: UNK
     Dates: start: 20130619

REACTIONS (2)
  - Biliary sepsis [Recovered/Resolved]
  - Biliary sepsis [Recovered/Resolved]
